FAERS Safety Report 24672124 (Version 1)
Quarter: 2024Q4

REPORT INFORMATION
  Report Type: Spontaneous
  Country: US (occurrence: US)
  Receive Date: 20241127
  Receipt Date: 20241127
  Transmission Date: 20250115
  Serious: Yes (Other)
  Sender: AMGEN
  Company Number: US-AMGEN-USASP2024230153

PATIENT
  Age: 69 Year
  Sex: Male

DRUGS (4)
  1. PREDNISONE [Suspect]
     Active Substance: PREDNISONE
     Indication: Immunoglobulin G4 related disease
     Dosage: UNK
     Route: 065
  2. PREDNISONE [Suspect]
     Active Substance: PREDNISONE
     Dosage: UNK
     Route: 065
  3. RITUXIMAB [Suspect]
     Active Substance: RITUXIMAB
     Indication: Immunoglobulin G4 related disease
     Dosage: 1 GRAM, Q2WK (EVERY 14 DAYS)
     Route: 065
  4. RITUXIMAB [Suspect]
     Active Substance: RITUXIMAB
     Indication: Immune-mediated nephritis
     Dosage: 1 GRAM, Q6MO (FOR TWO DOSES EVERY SIX MONTH)
     Route: 065

REACTIONS (3)
  - Immune-mediated nephritis [Unknown]
  - Drug effective for unapproved indication [Unknown]
  - Off label use [Unknown]
